FAERS Safety Report 14061916 (Version 1)
Quarter: 2017Q4

REPORT INFORMATION
  Report Type: Report from Study
  Country: US (occurrence: US)
  Receive Date: 20171009
  Receipt Date: 20171009
  Transmission Date: 20180321
  Serious: Yes (Death, Hospitalization)
  Sender: FDA-Public Use
  Company Number: US-SUN PHARMACEUTICAL INDUSTRIES LTD-2017US-151487

PATIENT
  Age: 62 Year
  Sex: Female

DRUGS (4)
  1. SONIDEGIB [Suspect]
     Active Substance: SONIDEGIB
     Dosage: 200 MG, QD
     Route: 048
     Dates: start: 20141021, end: 20141023
  2. PACLITAXEL COMP-PAC+ [Suspect]
     Active Substance: PACLITAXEL
     Indication: OVARIAN CANCER
     Dosage: UNK
     Route: 042
     Dates: start: 20140923, end: 20140930
  3. SONIDEGIB [Suspect]
     Active Substance: SONIDEGIB
     Indication: OVARIAN CANCER
     Dosage: 200 MG, QD
     Route: 048
     Dates: start: 20140923, end: 20140929
  4. PACLITAXEL COMP-PAC+ [Suspect]
     Active Substance: PACLITAXEL
     Dosage: UNK
     Route: 042
     Dates: start: 20141021, end: 20141107

REACTIONS (6)
  - Metastases to liver [None]
  - Ovarian cancer [Fatal]
  - Pyrexia [Recovered/Resolved]
  - Chills [None]
  - Atrial fibrillation [None]
  - Malignant neoplasm progression [Fatal]

NARRATIVE: CASE EVENT DATE: 20141023
